FAERS Safety Report 6700256-6 (Version None)
Quarter: 2010Q2

REPORT INFORMATION
  Report Type: 
  Country: None (occurrence: None)
  Receive Date: 20100428
  Receipt Date: 20100416
  Transmission Date: 20101027
  Serious: Yes (Hospitalization)
  Sender: FDA-Public Use
  Company Number: ES-PFIZER INC-2009226776

PATIENT
  Age: 23 Year
  Sex: Male

DRUGS (7)
  1. ANIDULAFUNGIN [Suspect]
     Indication: SYSTEMIC CANDIDA
     Dosage: 560 ML, 1X/DAY
     Route: 042
     Dates: start: 20090508, end: 20090508
  2. ANIDULAFUNGIN [Suspect]
     Indication: ASPERGILLOSIS
     Dosage: 280 ML, 1X/DAY
     Route: 042
     Dates: start: 20090509, end: 20090601
  3. VORICONAZOLE [Suspect]
     Indication: ASPERGILLOSIS
     Dosage: 274 MG, 2X/DAY
     Route: 042
     Dates: start: 20090507, end: 20090606
  4. CYCLOSPORINE [Concomitant]
     Indication: PROPHYLAXIS AGAINST GRAFT VERSUS HOST DISEASE
     Dosage: UNK
     Dates: start: 20090424, end: 20090508
  5. CYCLOSPORINE [Concomitant]
     Dosage: UNK
     Dates: start: 20090508, end: 20090511
  6. CYCLOSPORINE [Concomitant]
     Dosage: UNK
     Dates: start: 20090511, end: 20090522
  7. CYCLOSPORINE [Concomitant]
     Dosage: UNK
     Dates: start: 20090522, end: 20090527

REACTIONS (1)
  - VENOOCCLUSIVE LIVER DISEASE [None]
